FAERS Safety Report 5370483-1 (Version None)
Quarter: 2007Q2

REPORT INFORMATION
  Report Type: 
  Country: None (occurrence: None)
  Receive Date: 20070626
  Receipt Date: 20070322
  Transmission Date: 20071010
  Serious: No
  Sender: FDA-Public Use
  Company Number: US-AMGEN-US216179

PATIENT
  Sex: Female

DRUGS (3)
  1. ARANESP [Suspect]
     Indication: DRUG USE FOR UNKNOWN INDICATION
     Route: 058
     Dates: start: 20070221
  2. ANTIHYPERTENSIVES [Concomitant]
  3. DIURETICS [Concomitant]

REACTIONS (3)
  - HEADACHE [None]
  - NAUSEA [None]
  - NERVOUSNESS [None]
